FAERS Safety Report 6233779-7 (Version None)
Quarter: 2009Q2

REPORT INFORMATION
  Report Type: 
  Country: None (occurrence: None)
  Receive Date: 20090615
  Receipt Date: 20090615
  Transmission Date: 20091009
  Serious: No
  Sender: FDA-Public Use
  Company Number: None

PATIENT
  Sex: Male
  Weight: 71.4 kg

DRUGS (7)
  1. GEMCITABINE [Suspect]
     Indication: PANCREATIC CARCINOMA METASTATIC
     Dosage: 1500 MG Q WK X 3 EVERY 4 WK IV
     Route: 042
     Dates: start: 20080909, end: 20090303
  2. GEMCITABINE [Suspect]
  3. LOVENOX [Concomitant]
  4. FENTANYL [Concomitant]
  5. OXYCODONE HCL AND ACETAMINOPHEN [Concomitant]
  6. OMEPRAZOLE [Concomitant]
  7. METOPROLOL SUCCINATE [Concomitant]

REACTIONS (4)
  - BLOOD LACTATE DEHYDROGENASE INCREASED [None]
  - MICROANGIOPATHIC HAEMOLYTIC ANAEMIA [None]
  - RETICULOCYTOSIS [None]
  - THROMBOCYTOPENIA [None]
